FAERS Safety Report 18262287 (Version 1)
Quarter: 2020Q3

REPORT INFORMATION
  Report Type: Spontaneous
  Country: US (occurrence: US)
  Receive Date: 20200913
  Receipt Date: 20200913
  Transmission Date: 20201103
  Serious: Yes (Hospitalization)
  Sender: FDA-Public Use
  Company Number: None

PATIENT
  Age: 41 Year
  Sex: Male
  Weight: 104.4 kg

DRUGS (2)
  1. H.E.B PHARMACY BRX# 1604425 LEVOTHYROXINE 100MCG [Suspect]
     Active Substance: LEVOTHYROXINE
     Indication: HYPOTHYROIDISM
     Dosage: ?          QUANTITY:1 TABLET(S);?
     Route: 048
     Dates: start: 20200820, end: 20200828
  2. HYPOTHYROIDISM AND BLOOD PRESSURE DRUGS [Concomitant]

REACTIONS (3)
  - Product substitution issue [None]
  - Blood thyroid stimulating hormone increased [None]
  - Recalled product administered [None]

NARRATIVE: CASE EVENT DATE: 20200827
